FAERS Safety Report 19748618 (Version 1)
Quarter: 2021Q3

REPORT INFORMATION
  Report Type: Spontaneous
  Country: US (occurrence: US)
  Receive Date: 20210825
  Receipt Date: 20210825
  Transmission Date: 20211014
  Serious: Yes (Disabling)
  Sender: FDA-Public Use
  Company Number: None

PATIENT
  Age: 19 Year
  Sex: Male

DRUGS (1)
  1. MINOXIDIL. [Suspect]
     Active Substance: MINOXIDIL

REACTIONS (7)
  - Ocular hyperaemia [None]
  - Mood swings [None]
  - Libido decreased [None]
  - Palpitations [None]
  - Suicidal ideation [None]
  - Semen volume decreased [None]
  - Erectile dysfunction [None]

NARRATIVE: CASE EVENT DATE: 20210505
